FAERS Safety Report 5292206-7 (Version None)
Quarter: 2007Q2

REPORT INFORMATION
  Report Type: 
  Country: None (occurrence: None)
  Receive Date: 20070410
  Receipt Date: 20070409
  Transmission Date: 20071010
  Serious: Yes (Other)
  Sender: FDA-Public Use
  Company Number: AT-ROCHE-230902

PATIENT
  Age: 58 Year
  Sex: Male
  Weight: 97 kg

DRUGS (7)
  1. INTERFERON ALFA-2A [Suspect]
     Indication: MALIGNANT MELANOMA
     Route: 058
     Dates: start: 19980922, end: 20000224
  2. PLACEBO [Suspect]
     Indication: MALIGNANT MELANOMA
     Route: 048
     Dates: start: 19980922, end: 20000224
  3. ISOMONAT [Concomitant]
  4. DOLGIT [Concomitant]
  5. SIRDALUD [Concomitant]
  6. PANTOPRAZOLE SODIUM [Concomitant]
     Indication: PROPHYLAXIS
  7. ENALAPRIL MALEATE [Concomitant]

REACTIONS (1)
  - NERVE ROOT LESION [None]
